FAERS Safety Report 11466061 (Version 1)
Quarter: 2015Q3

REPORT INFORMATION
  Report Type: Spontaneous
  Country: BR (occurrence: BR)
  Receive Date: 20150907
  Receipt Date: 20150907
  Transmission Date: 20151125
  Serious: Yes (Other)
  Sender: FDA-Public Use
  Company Number: BR-ASTRAZENECA-2015SE85296

PATIENT
  Age: 77 Year
  Sex: Male

DRUGS (4)
  1. SELOZOK [Suspect]
     Active Substance: METOPROLOL SUCCINATE
     Indication: BLOOD PRESSURE ABNORMAL
     Dosage: DAILY
     Route: 048
     Dates: start: 2005
  2. ASPIRINA PREVENT [Concomitant]
     Active Substance: ASPIRIN
     Indication: INFARCTION
     Dosage: DAILY
     Route: 048
     Dates: start: 2005
  3. ZYLORIC [Concomitant]
     Active Substance: ALLOPURINOL
     Indication: BLOOD URIC ACID ABNORMAL
     Dosage: DAILY
     Route: 048
     Dates: start: 2005
  4. ATACAND [Suspect]
     Active Substance: CANDESARTAN CILEXETIL
     Indication: BLOOD PRESSURE ABNORMAL
     Dosage: DAILY
     Route: 048
     Dates: start: 2005

REACTIONS (1)
  - Acute myocardial infarction [Recovering/Resolving]

NARRATIVE: CASE EVENT DATE: 201504
